FAERS Safety Report 11650587 (Version 2)
Quarter: 2015Q4

REPORT INFORMATION
  Report Type: Spontaneous
  Country: None (occurrence: US)
  Receive Date: 20151021
  Receipt Date: 20151022
  Transmission Date: 20160304
  Serious: No
  Sender: FDA-Public Use
  Company Number: US-NOVOPROD-429887

PATIENT
  Age: 63 Year
  Sex: Male

DRUGS (1)
  1. VAGIFEM [Suspect]
     Active Substance: ESTRADIOL
     Indication: EXPOSURE VIA PARTNER
     Dosage: UNK

REACTIONS (1)
  - Penile burning sensation [Not Recovered/Not Resolved]
